FAERS Safety Report 7044612-8 (Version None)
Quarter: 2010Q4

REPORT INFORMATION
  Report Type: 
  Country: None (occurrence: None)
  Receive Date: 20101014
  Receipt Date: 20101008
  Transmission Date: 20110411
  Serious: Yes (Hospitalization)
  Sender: FDA-Public Use
  Company Number: JP-EISAI INC.-E2090-01331-SPO-JP

PATIENT
  Sex: Male

DRUGS (2)
  1. EXCEGRAN [Suspect]
     Indication: CONVULSION
     Route: 048
     Dates: start: 20100815, end: 20100829
  2. MEIACT [Suspect]
     Indication: PYREXIA
     Route: 048
     Dates: start: 20100827, end: 20100829

REACTIONS (1)
  - STEVENS-JOHNSON SYNDROME [None]
